FAERS Safety Report 7339333-8 (Version None)
Quarter: 2011Q1

REPORT INFORMATION
  Report Type: 
  Country: None (occurrence: None)
  Receive Date: 20110308
  Receipt Date: 20110222
  Transmission Date: 20110831
  Serious: Yes (Other)
  Sender: FDA-Public Use
  Company Number: US-PFIZER INC-2011012410

PATIENT
  Sex: Female
  Weight: 61.2 kg

DRUGS (3)
  1. ATENOLOL [Concomitant]
     Indication: BLOOD PRESSURE ABNORMAL
  2. PREMARIN [Suspect]
     Indication: MENOPAUSE
     Dosage: UNK
     Route: 048
  3. FUROSEMIDE [Concomitant]
     Indication: BLOOD PRESSURE ABNORMAL

REACTIONS (1)
  - OSTEOPOROSIS [None]
